FAERS Safety Report 25755526 (Version 1)
Quarter: 2025Q3

REPORT INFORMATION
  Report Type: Spontaneous
  Country: EU (occurrence: EU)
  Receive Date: 20250903
  Receipt Date: 20250903
  Transmission Date: 20251020
  Serious: Yes (Other)
  Sender: DEXCEL LTD.
  Company Number: None

PATIENT
  Age: 54 Year
  Sex: Female
  Weight: 66 kg

DRUGS (1)
  1. CHLORHEXIDINE GLUCONATE [Suspect]
     Active Substance: CHLORHEXIDINE GLUCONATE
     Indication: Stomatitis
     Dosage: 2X DAILY
     Route: 048
     Dates: start: 20250822, end: 20250823

REACTIONS (7)
  - Dyspnoea [Recovering/Resolving]
  - Cough [Recovering/Resolving]
  - Arrhythmia [Recovering/Resolving]
  - Breast pain [Recovering/Resolving]
  - Tongue discomfort [Recovering/Resolving]
  - Swollen tongue [Recovering/Resolving]
  - Ageusia [Recovering/Resolving]

NARRATIVE: CASE EVENT DATE: 20250823
